FAERS Safety Report 18021540 (Version 1)
Quarter: 2020Q3

REPORT INFORMATION
  Report Type: Spontaneous
  Country: FR (occurrence: FR)
  Receive Date: 20200714
  Receipt Date: 20200714
  Transmission Date: 20201103
  Serious: Yes (Hospitalization)
  Sender: FDA-Public Use
  Company Number: FR-009507513-2007FRA002137

PATIENT
  Age: 14 Year
  Sex: Female

DRUGS (4)
  1. ALPRAZOLAM. [Suspect]
     Active Substance: ALPRAZOLAM
     Dosage: 5 MILLIGRAM
  2. NORSET [Suspect]
     Active Substance: MIRTAZAPINE
     Dosage: 60 MILLIGRAM
  3. PRAZEPAM [Suspect]
     Active Substance: PRAZEPAM
     Dosage: 200 MILLIGRAM
  4. ZOPICLONE [Suspect]
     Active Substance: ZOPICLONE
     Dosage: 18 MILLIGRAM

REACTIONS (3)
  - Tachypnoea [Recovered/Resolved]
  - Altered state of consciousness [Recovered/Resolved]
  - Suicide attempt [Recovered/Resolved]
